FAERS Safety Report 26057937 (Version 2)
Quarter: 2025Q4

REPORT INFORMATION
  Report Type: Spontaneous
  Country: US (occurrence: US)
  Receive Date: 20251118
  Receipt Date: 20251221
  Transmission Date: 20260118
  Serious: No
  Sender: AMGEN
  Company Number: US-PFIZER INC-202500224252

PATIENT
  Age: 74 Year
  Sex: Male

DRUGS (1)
  1. ETANERCEPT [Suspect]
     Active Substance: ETANERCEPT
     Indication: Product used for unknown indication
     Dosage: UNK
     Route: 065

REACTIONS (3)
  - Injection site vesicles [Unknown]
  - Drug hypersensitivity [Unknown]
  - Pruritus [Unknown]
